FAERS Safety Report 17737126 (Version 1)
Quarter: 2020Q2

REPORT INFORMATION
  Report Type: Spontaneous
  Country: FR (occurrence: FR)
  Receive Date: 20200502
  Receipt Date: 20200502
  Transmission Date: 20200714
  Serious: Yes (Hospitalization)
  Sender: FDA-Public Use
  Company Number: FR-TEVA-2020-FR-1229151

PATIENT
  Age: 88 Year
  Sex: Male

DRUGS (7)
  1. SPIRONOLACTONE. [Suspect]
     Active Substance: SPIRONOLACTONE
     Dosage: 25 MG
     Route: 048
  2. OXYCODONE [Concomitant]
     Active Substance: OXYCODONE
     Route: 048
  3. DIFFU K, GELULE [Concomitant]
     Active Substance: POTASSIUM CHLORIDE
     Route: 048
  4. LASILIX SPECIAL 500 MG, COMPRIME SECABLE [Suspect]
     Active Substance: FUROSEMIDE
     Dosage: 0.25 DF
     Route: 048
  5. FONDAPARINUX SODIQUE [Concomitant]
     Active Substance: FONDAPARINUX SODIUM
     Route: 058
  6. SERETIDE [Concomitant]
     Active Substance: FLUTICASONE PROPIONATE\SALMETEROL XINAFOATE
     Route: 055
  7. SALBUTAMOL [Concomitant]
     Active Substance: ALBUTEROL
     Route: 055

REACTIONS (2)
  - General physical health deterioration [Recovering/Resolving]
  - Dehydration [Recovering/Resolving]

NARRATIVE: CASE EVENT DATE: 20200107
